FAERS Safety Report 18352044 (Version 1)
Quarter: 2020Q4

REPORT INFORMATION
  Report Type: Report from Study
  Country: GB (occurrence: GB)
  Receive Date: 20201006
  Receipt Date: 20201006
  Transmission Date: 20210114
  Serious: Yes (Hospitalization)
  Sender: FDA-Public Use
  Company Number: GB-JNJFOC-20200945833

PATIENT
  Sex: Male
  Weight: 116.4 kg

DRUGS (19)
  1. OXYCODONE [Concomitant]
     Active Substance: OXYCODONE
     Dates: start: 20160929
  2. FINASTERIDE. [Concomitant]
     Active Substance: FINASTERIDE
     Dates: start: 20160929
  3. GAVISCON                           /00237601/ [Concomitant]
     Active Substance: ALUMINUM HYDROXIDE\MAGNESIUM CARBONATE
     Dates: start: 20170913
  4. GLICLAZIDE [Concomitant]
     Active Substance: GLICLAZIDE
     Dates: start: 20181114
  5. STELARA [Suspect]
     Active Substance: USTEKINUMAB
     Indication: PSORIASIS
     Route: 058
     Dates: start: 20111031
  6. STELARA [Suspect]
     Active Substance: USTEKINUMAB
  7. OXYCODONE [Concomitant]
     Active Substance: OXYCODONE
     Dates: start: 20181114
  8. INSULIN [Concomitant]
     Active Substance: INSULIN NOS
     Dates: start: 20181114
  9. AMLODIPINE [Concomitant]
     Active Substance: AMLODIPINE BESYLATE
     Dates: start: 20120914
  10. DOVOBET [Concomitant]
     Active Substance: BETAMETHASONE\CALCIPOTRIENE
     Dates: start: 20150914
  11. METFORMIN [Concomitant]
     Active Substance: METFORMIN HYDROCHLORIDE
     Dates: start: 20150914
  12. FUROSEMIDE. [Concomitant]
     Active Substance: FUROSEMIDE
     Dates: start: 20160929
  13. ATORVASTATIN [Concomitant]
     Active Substance: ATORVASTATIN
     Dates: start: 20170913
  14. BISOPROLOL [Concomitant]
     Active Substance: BISOPROLOL
     Dates: start: 20120914
  15. BENDROFLUMETHIAZIDE [Concomitant]
     Active Substance: BENDROFLUMETHIAZIDE
     Dates: start: 20181114
  16. ASPIRIN                            /00002701/ [Concomitant]
     Active Substance: ASPIRIN
     Dates: start: 20150914
  17. OMEPRAZOLE. [Concomitant]
     Active Substance: OMEPRAZOLE
     Dates: start: 20150914
  18. RANOLAZINE. [Concomitant]
     Active Substance: RANOLAZINE
     Dates: start: 20160929
  19. RAMIPRIL. [Concomitant]
     Active Substance: RAMIPRIL
     Dates: start: 20150914

REACTIONS (2)
  - Postoperative wound infection [Unknown]
  - Gangrene [Recovered/Resolved]

NARRATIVE: CASE EVENT DATE: 20181231
